FAERS Safety Report 7940044-6 (Version None)
Quarter: 2011Q4

REPORT INFORMATION
  Report Type: 
  Country: None (occurrence: None)
  Receive Date: 20111125
  Receipt Date: 20111111
  Transmission Date: 20120403
  Serious: Yes (Hospitalization, Other)
  Sender: FDA-Public Use
  Company Number: KR-WATSON-2011-17702

PATIENT
  Age: 60 Year
  Sex: Male

DRUGS (3)
  1. TACROLIMUS [Suspect]
     Indication: LIVER TRANSPLANT
     Dosage: UNK
  2. MYCOPHENOLATE MEFETIL [Suspect]
     Indication: LIVER TRANSPLANT
     Dosage: UNK UNK, UNKNOWN
  3. TACROLIMUS [Suspect]

REACTIONS (10)
  - OCULAR ICTERUS [None]
  - ALTERED STATE OF CONSCIOUSNESS [None]
  - ASTERIXIS [None]
  - HEPATITIS FULMINANT [None]
  - DIARRHOEA [None]
  - ABDOMINAL PAIN [None]
  - JAUNDICE [None]
  - CYTOMEGALOVIRUS TEST POSITIVE [None]
  - THROMBOTIC MICROANGIOPATHY [None]
  - HEPATIC ENCEPHALOPATHY [None]
